FAERS Safety Report 8313898-1 (Version None)
Quarter: 2012Q2

REPORT INFORMATION
  Report Type: 
  Country: None (occurrence: None)
  Receive Date: 20120426
  Receipt Date: 20120426
  Transmission Date: 20120825
  Serious: No
  Sender: FDA-Public Use
  Company Number: None

PATIENT
  Age: 78 Year
  Sex: Female
  Weight: 81.646 kg

DRUGS (2)
  1. LEVEMIR [Suspect]
     Indication: TYPE 2 DIABETES MELLITUS
     Dosage: 26 UNITS
     Dates: start: 20110811, end: 20120425
  2. LEVEMIR [Concomitant]

REACTIONS (2)
  - DRUG INEFFECTIVE [None]
  - BLOOD GLUCOSE INCREASED [None]
